FAERS Safety Report 4660540-7 (Version None)
Quarter: 2005Q2

REPORT INFORMATION
  Report Type: 
  Country: None (occurrence: None)
  Receive Date: 20050427
  Receipt Date: 20050119
  Transmission Date: 20051028
  Serious: No
  Sender: FDA-Public Use
  Company Number: 210987

PATIENT
  Age: 11 Year
  Sex: Male

DRUGS (7)
  1. XOLAIR [Suspect]
     Indication: DRUG USE FOR UNKNOWN INDICATION
     Dosage: 325 MG,Q2W
     Dates: start: 20031229
  2. PREVACID [Concomitant]
  3. FLONASE [Concomitant]
  4. QVAR (BECLOMETHASONE DIPROPIONATE) [Concomitant]
  5. ALBUTEROL (ALBUTEROL, ALBUTEROL SULFATE) [Concomitant]
  6. FORADIL [Concomitant]
  7. KEPINOL (SULFAMETHOXAZOLE, TRIMETHOPRIM) [Concomitant]

REACTIONS (3)
  - GASTROENTERITIS VIRAL [None]
  - INJECTION SITE MASS [None]
  - VOMITING [None]
